FAERS Safety Report 5794780-0 (Version None)
Quarter: 2008Q2

REPORT INFORMATION
  Report Type: 
  Country: None (occurrence: None)
  Receive Date: 20080626
  Receipt Date: 20080626
  Transmission Date: 20081010
  Serious: Yes (Hospitalization)
  Sender: FDA-Public Use
  Company Number: None

PATIENT
  Age: 57 Year
  Sex: Male
  Weight: 58.51 kg

DRUGS (1)
  1. GLYBURIDE [Suspect]
     Indication: DIABETES MELLITUS
     Dosage: 2.5 MG EVERY DAY PO
     Route: 048
     Dates: start: 20071022, end: 20071105

REACTIONS (4)
  - BODY TEMPERATURE INCREASED [None]
  - HYPERTENSION [None]
  - HYPOGLYCAEMIA [None]
  - TACHYCARDIA [None]
